FAERS Safety Report 7441457-1 (Version None)
Quarter: 2011Q2

REPORT INFORMATION
  Report Type: 
  Country: None (occurrence: None)
  Receive Date: 20110418
  Receipt Date: 20110401
  Transmission Date: 20111010
  Serious: Yes (Other)
  Sender: FDA-Public Use
  Company Number: AUR-APL-2010-02144

PATIENT
  Age: 87 Year
  Sex: Female
  Weight: 53.06 kg

DRUGS (11)
  1. METFORMIN HCL [Suspect]
     Indication: DIABETES MELLITUS
     Dosage: 500MG  DAILY
  2. NORVASC [Concomitant]
  3. PROTONIX [Suspect]
     Indication: OESOPHAGEAL DISORDER
     Dosage: 0.5 TABLET-DAILY-ORAL
     Route: 048
     Dates: start: 20091101
  4. BENICAR [Concomitant]
  5. GLYBURIDE [Suspect]
     Indication: DIABETES MELLITUS
     Dosage: 10MG-BID
     Dates: end: 20100401
  6. ZITHROMAX [Suspect]
     Dates: start: 20090401
  7. PROTONIX [Suspect]
     Indication: OESOPHAGEAL DISORDER
     Dosage: 0.5 TABLET-DAILY-ORAL
     Route: 048
     Dates: start: 20091101
  8. GLYBURIDE [Suspect]
     Indication: DIABETES MELLITUS
     Dosage: 2.5MG - DAILY
     Dates: end: 20100401
  9. IRON [Concomitant]
  10. GLYBURIDE [Suspect]
     Indication: DIABETES MELLITUS
     Dosage: 5MG - BID
     Dates: end: 20100401
  11. GLYBURIDE [Suspect]
     Indication: DIABETES MELLITUS
     Dosage: 5MG-DAILY
     Dates: start: 20100401

REACTIONS (14)
  - BODY TEMPERATURE INCREASED [None]
  - EPISTAXIS [None]
  - DISCOMFORT [None]
  - DRUG ADMINISTRATION ERROR [None]
  - INCORRECT DRUG ADMINISTRATION DURATION [None]
  - CHRONIC MYELOID LEUKAEMIA [None]
  - ANAEMIA [None]
  - CONDITION AGGRAVATED [None]
  - WRONG TECHNIQUE IN DRUG USAGE PROCESS [None]
  - BLOOD IRON DECREASED [None]
  - GENERAL PHYSICAL HEALTH DETERIORATION [None]
  - WEIGHT DECREASED [None]
  - DRUG INTERACTION [None]
  - DIABETES MELLITUS INADEQUATE CONTROL [None]
